FAERS Safety Report 9516565 (Version 1)
Quarter: 2013Q1

REPORT INFORMATION
  Report Type: Spontaneous
  Country: US (occurrence: None)
  Receive Date: 20130305
  Receipt Date: 20130305
  Transmission Date: 20140127
  Serious: Yes (Other)
  Sender: FDA-Public Use
  Company Number: 163-21880-12080639

PATIENT
  Age: 80 Year
  Sex: Female
  Weight: 49.9 kg

DRUGS (1)
  1. REVLIMID (LENALIDOMIDE) (CAPSULES) [Suspect]
     Indication: MYELODYSPLASTIC SYNDROME
     Dosage: 10MG, 28 IN 28 D, PO
     Route: 048
     Dates: start: 201207

REACTIONS (2)
  - Platelet count decreased [None]
  - White blood cell count decreased [None]
